FAERS Safety Report 24754373 (Version 2)
Quarter: 2025Q3

REPORT INFORMATION
  Report Type: Report from Study
  Country: US (occurrence: US)
  Receive Date: 20241219
  Receipt Date: 20250803
  Transmission Date: 20251021
  Serious: Yes (Hospitalization, Other)
  Sender: ALEXION PHARMACEUTICALS
  Company Number: US-ALXN-202311USA001351US

PATIENT
  Sex: Female

DRUGS (1)
  1. STRENSIQ [Suspect]
     Active Substance: ASFOTASE ALFA
     Route: 065

REACTIONS (14)
  - Hypokalaemia [Unknown]
  - Nephrolithiasis [Not Recovered/Not Resolved]
  - Clostridium difficile infection [Unknown]
  - Back pain [Unknown]
  - Retching [Unknown]
  - Vomiting [Unknown]
  - Sinusitis [Unknown]
  - Scoliosis [Unknown]
  - Blood creatinine decreased [Unknown]
  - Vitamin B6 decreased [Unknown]
  - Arrhythmia supraventricular [Unknown]
  - Injection site discolouration [Unknown]
  - Injection site atrophy [Unknown]
  - Pain in extremity [Unknown]
